FAERS Safety Report 5593113-2 (Version None)
Quarter: 2008Q1

REPORT INFORMATION
  Report Type: 
  Country: None (occurrence: None)
  Receive Date: 20080114
  Receipt Date: 20080114
  Transmission Date: 20080703
  Serious: No
  Sender: FDA-Public Use
  Company Number: None

PATIENT
  Age: 69 Year
  Sex: Male
  Weight: 117.4816 kg

DRUGS (1)
  1. HEPARIN [Suspect]
     Indication: PULMONARY EMBOLISM
     Dosage: 25000IU  SLIDING SCALE  IV
     Route: 042
     Dates: start: 20071009, end: 20071214

REACTIONS (1)
  - THROMBOCYTOPENIA [None]
